FAERS Safety Report 10238780 (Version 3)
Quarter: 2014Q3

REPORT INFORMATION
  Report Type: Report from Study
  Country: US (occurrence: US)
  Receive Date: 20140616
  Receipt Date: 20140807
  Transmission Date: 20150326
  Serious: Yes (Other)
  Sender: FDA-Public Use
  Company Number: US-SA-2014SA074700

PATIENT
  Age: 62 Year
  Sex: Male

DRUGS (2)
  1. LANTUS [Suspect]
     Active Substance: INSULIN GLARGINE
     Indication: DIABETES MELLITUS
     Dosage: LANTUS VIAL DOSE:40 UNIT(S)
     Route: 058
  2. VIOXX [Concomitant]
     Active Substance: ROFECOXIB

REACTIONS (3)
  - Renal failure [Unknown]
  - Hepatic failure [Unknown]
  - Diabetes mellitus inadequate control [Unknown]
